FAERS Safety Report 24052840 (Version 1)
Quarter: 2024Q3

REPORT INFORMATION
  Report Type: Report from Study
  Country: US (occurrence: US)
  Receive Date: 20240705
  Receipt Date: 20240705
  Transmission Date: 20241016
  Serious: Yes (Other)
  Sender: AUROBINDO
  Company Number: US-AUROBINDO-AUR-APL-2024-024482

PATIENT
  Age: 44 Year
  Sex: Male

DRUGS (3)
  1. IMATINIB [Suspect]
     Active Substance: IMATINIB
     Indication: Chordoma
     Dosage: UNK
     Route: 065
     Dates: start: 2017
  2. IPILIMUMAB [Suspect]
     Active Substance: IPILIMUMAB
     Indication: Chordoma
     Dosage: UNK
     Route: 065
     Dates: start: 2019
  3. NIVOLUMAB [Suspect]
     Active Substance: NIVOLUMAB
     Indication: Chordoma
     Dosage: UNK
     Route: 065
     Dates: start: 2019

REACTIONS (2)
  - Disease progression [Unknown]
  - Drug ineffective [Unknown]
